FAERS Safety Report 5833365-4 (Version None)
Quarter: 2008Q3

REPORT INFORMATION
  Report Type: 
  Country: None (occurrence: None)
  Receive Date: 20080804
  Receipt Date: 20080804
  Transmission Date: 20090109
  Serious: Yes (Other)
  Sender: FDA-Public Use
  Company Number: None

PATIENT
  Sex: Female
  Weight: 51.7101 kg

DRUGS (1)
  1. RECLAST [Suspect]
     Indication: OSTEOPOROSIS
     Dosage: YEARLY IV
     Route: 042
     Dates: start: 20080121

REACTIONS (5)
  - ARTHRALGIA [None]
  - BACK PAIN [None]
  - ILEUS [None]
  - WALKING AID USER [None]
  - WHEELCHAIR USER [None]
